FAERS Safety Report 5177204-6 (Version None)
Quarter: 2006Q4

REPORT INFORMATION
  Report Type: 
  Country: None (occurrence: None)
  Receive Date: 20061218
  Receipt Date: 20060601
  Transmission Date: 20070319
  Serious: Yes (Hospitalization)
  Sender: FDA-Public Use
  Company Number: PHHO2006SE08798

PATIENT
  Age: 89 Year
  Sex: Female

DRUGS (5)
  1. ZOLEDRONIC ACID VS PLACEBO [Suspect]
     Indication: OSTEOPOROTIC FRACTURE
     Dosage: 5 MG, ONCE YEARLY
     Route: 042
     Dates: start: 20050905
  2. PREDNISOLONE [Suspect]
     Indication: POLYMYALGIA RHEUMATICA
     Dosage: 5 MG, UNK
     Route: 048
     Dates: start: 19980101
  3. CALCIUM CARBONATE [Concomitant]
     Indication: OSTEOPOROTIC FRACTURE
  4. VITAMIN D [Concomitant]
     Indication: OSTEOPOROTIC FRACTURE
  5. ATENOLOL [Concomitant]
     Indication: HYPERTENSION
     Dosage: 25 MG, UNK
     Route: 048

REACTIONS (2)
  - HIP ARTHROPLASTY [None]
  - OSTEONECROSIS [None]
